FAERS Safety Report 9529713 (Version 1)
Quarter: 2013Q3

REPORT INFORMATION
  Report Type: Spontaneous
  Country: US (occurrence: US)
  Receive Date: 20130917
  Receipt Date: 20130917
  Transmission Date: 20140515
  Serious: No
  Sender: FDA-Public Use
  Company Number: US-SANOFI-AVENTIS-2012SA066738

PATIENT
  Age: 23 Year
  Sex: Male
  Weight: 113 kg

DRUGS (4)
  1. DDAVP [Suspect]
     Indication: DIABETES INSIPIDUS
     Route: 048
     Dates: start: 201206
  2. DDAVP [Suspect]
     Indication: OSTEOCHONDROSIS
     Route: 048
     Dates: start: 201206
  3. OXYCODONE [Concomitant]
     Indication: SCOLIOSIS
     Route: 048
  4. ADDERALL XR [Concomitant]
     Indication: ATTENTION DEFICIT/HYPERACTIVITY DISORDER

REACTIONS (1)
  - Cough [Not Recovered/Not Resolved]
